FAERS Safety Report 5879255-2 (Version None)
Quarter: 2008Q3

REPORT INFORMATION
  Report Type: 
  Country: None (occurrence: None)
  Receive Date: 20080912
  Receipt Date: 20080908
  Transmission Date: 20090109
  Serious: Yes (Hospitalization)
  Sender: FDA-Public Use
  Company Number: HU-BAYER-200825826GPV

PATIENT
  Age: 29 Year
  Sex: Female

DRUGS (6)
  1. CIPRO [Suspect]
     Indication: CAMPYLOBACTER INFECTION
     Dosage: TOTAL DAILY DOSE: 500 MG  UNIT DOSE: 250 MG
     Route: 048
     Dates: start: 20080807, end: 20080811
  2. FSME IMMUN [Suspect]
     Indication: IMMUNISATION
     Dosage: TOTAL DAILY DOSE: 0.5 ML
     Route: 030
     Dates: start: 20080718, end: 20080718
  3. FSME IMMUN [Suspect]
     Dosage: TOTAL DAILY DOSE: 0.5 ML
     Route: 030
     Dates: start: 20080616, end: 20080616
  4. SUMETROLIM [Suspect]
     Indication: BACTERIAL INFECTION
     Dosage: TOTAL DAILY DOSE: 1920 MG
     Route: 048
     Dates: start: 20080725, end: 20080725
  5. SUMETROLIM [Suspect]
     Dosage: TOTAL DAILY DOSE: 960 MG
     Route: 048
     Dates: start: 20080726, end: 20080729
  6. NOOTROPIL [Concomitant]
     Indication: DIZZINESS
     Route: 065
     Dates: start: 20080616, end: 20080618

REACTIONS (7)
  - BACK PAIN [None]
  - CAMPYLOBACTER INFECTION [None]
  - DIARRHOEA [None]
  - HEADACHE [None]
  - MYALGIA [None]
  - PYREXIA [None]
  - RASH [None]
